FAERS Safety Report 8774365 (Version 1)
Quarter: 2012Q4

REPORT INFORMATION
  Report Type: 
  Country: NO (occurrence: NO)
  Receive Date: 20120907
  Receipt Date: 20120907
  Transmission Date: 20130627
  Serious: Yes (Hospitalization, Disabling)
  Sender: FDA-Public Use
  Company Number: NO-AMGEN-NORSP2012055283

PATIENT
  Age: 57 Year
  Sex: Male

DRUGS (5)
  1. ENBREL [Suspect]
     Indication: ANKYLOSING SPONDYLITIS
     Dosage: 50 mg, qwk
     Route: 058
     Dates: start: 20110615, end: 20111024
  2. ORFIRIL [Concomitant]
     Dosage: 900 mg morning - 600 mg evening
     Route: 048
     Dates: start: 201105
  3. ADALAT OROS [Concomitant]
     Dosage: 60 mg, qd
     Route: 048
  4. MAREVAN [Concomitant]
     Dosage: 17,5 tablets per week
     Route: 048
  5. PARACET                            /00020001/ [Concomitant]
     Dosage: 1 g, tid
     Route: 048

REACTIONS (1)
  - Renal failure acute [Recovered/Resolved with Sequelae]
